FAERS Safety Report 7325386-X (Version None)
Quarter: 2011Q1

REPORT INFORMATION
  Report Type: 
  Country: None (occurrence: None)
  Receive Date: 20110302
  Receipt Date: 20110217
  Transmission Date: 20110831
  Serious: Yes (Death, Hospitalization)
  Sender: FDA-Public Use
  Company Number: GB-CELGENEUS-167-C5013-11012975

PATIENT
  Sex: Male
  Weight: 86.4 kg

DRUGS (4)
  1. DOCETAXEL [Suspect]
     Indication: PROSTATE CANCER
     Route: 065
     Dates: start: 20101001
  2. CC-5013\PLACEBO [Suspect]
     Indication: PROSTATE CANCER
     Route: 048
     Dates: start: 20101001
  3. PREDNISONE [Suspect]
     Indication: PROSTATE CANCER
     Route: 065
     Dates: start: 20101001
  4. CC-5013\PLACEBO [Suspect]
     Dosage: 120 MILLIGRAM
     Route: 048
     Dates: start: 20110125

REACTIONS (4)
  - PROSTATE CANCER METASTATIC [None]
  - DYSPNOEA [None]
  - PULMONARY EMBOLISM [None]
  - LOWER RESPIRATORY TRACT INFECTION [None]
